FAERS Safety Report 23180747 (Version 2)
Quarter: 2023Q4

REPORT INFORMATION
  Report Type: Spontaneous
  Country: US (occurrence: US)
  Receive Date: 20231114
  Receipt Date: 20231120
  Transmission Date: 20240110
  Serious: No
  Sender: FDA-Public Use
  Company Number: US-AMGEN-USASP2023202075

PATIENT
  Sex: Male

DRUGS (1)
  1. KYPROLIS [Suspect]
     Active Substance: CARFILZOMIB
     Indication: Product used for unknown indication
     Dosage: UNK, QWK ((3 TIMES A MONTH- ONCE PER WEEK)
     Route: 042

REACTIONS (3)
  - Off label use [Unknown]
  - Skin discolouration [Unknown]
  - Pruritus [Unknown]
